FAERS Safety Report 16043039 (Version 1)
Quarter: 2019Q1

REPORT INFORMATION
  Report Type: Spontaneous
  Country: BR (occurrence: BR)
  Receive Date: 20190306
  Receipt Date: 20190306
  Transmission Date: 20190418
  Serious: Yes (Other)
  Sender: FDA-Public Use
  Company Number: BR-SA-2019SA056668

PATIENT
  Sex: Female

DRUGS (6)
  1. GLIFAGE [Concomitant]
     Active Substance: METFORMIN HYDROCHLORIDE
     Indication: DIABETES MELLITUS
     Dosage: 2 DF, BID
     Route: 048
  2. ALPRAZOLAM. [Concomitant]
     Active Substance: ALPRAZOLAM
     Indication: SLEEP DISORDER
     Dosage: UNK UNK, QD
     Route: 048
  3. APIDRA [Suspect]
     Active Substance: INSULIN GLULISINE
     Indication: DIABETES MELLITUS MANAGEMENT
     Dosage: UNK UNK, TID
     Route: 058
     Dates: start: 20190130
  4. MILGAMMA [BENFOTIAMINE] [Concomitant]
     Active Substance: BENFOTIAMINE
     Dosage: UNK UNK, QD
     Route: 048
  5. ZINPASS [Concomitant]
     Dosage: UNK UNK, QD
     Route: 048
  6. LANTUS [Suspect]
     Active Substance: INSULIN GLARGINE
     Indication: DIABETES MELLITUS
     Dosage: 18 IU, QD
     Dates: start: 20190130

REACTIONS (3)
  - Nervous system disorder [Unknown]
  - Humerus fracture [Unknown]
  - Pain in extremity [Unknown]
